FAERS Safety Report 19013718 (Version 3)
Quarter: 2021Q3

REPORT INFORMATION
  Report Type: Spontaneous
  Country: US (occurrence: US)
  Receive Date: 20210315
  Receipt Date: 20210715
  Transmission Date: 20211014
  Serious: Yes (Hospitalization, Other)
  Sender: FDA-Public Use
  Company Number: US-AMGEN-USASP2021036718

PATIENT
  Age: 65 Year
  Sex: Female

DRUGS (4)
  1. PROLIA [Suspect]
     Active Substance: DENOSUMAB
     Indication: OSTEOPOROSIS POSTMENOPAUSAL
     Dosage: 60 MILLIGRAM, Q6MO
     Route: 058
  2. MODERNA COVID?19 VACCINE [Concomitant]
     Active Substance: CX-024414
     Dosage: UNK
  3. EVENITY [Suspect]
     Active Substance: ROMOSOZUMAB-AQQG
     Indication: OSTEOPOROSIS POSTMENOPAUSAL
     Dosage: 210 MILLIGRAM, QMO
     Route: 058
     Dates: start: 20210208
  4. EVENITY [Suspect]
     Active Substance: ROMOSOZUMAB-AQQG

REACTIONS (9)
  - Implant site abscess [Unknown]
  - Pain in extremity [Recovering/Resolving]
  - Iron deficiency anaemia [Unknown]
  - Injection site mass [Recovered/Resolved]
  - Product administered at inappropriate site [Unknown]
  - Spinal disorder [Unknown]
  - Osteomyelitis [Recovering/Resolving]
  - Pharyngitis streptococcal [Recovering/Resolving]
  - Therapeutic product effect incomplete [Unknown]

NARRATIVE: CASE EVENT DATE: 2021
